FAERS Safety Report 9774342 (Version 1)
Quarter: 2013Q4

REPORT INFORMATION
  Report Type: Spontaneous
  Country: US (occurrence: None)
  Receive Date: 20131219
  Receipt Date: 20131219
  Transmission Date: 20140711
  Serious: Yes (Life-Threatening, Other)
  Sender: FDA-Public Use
  Company Number: None

PATIENT
  Age: 52 Year
  Sex: Female
  Weight: 81.65 kg

DRUGS (1)
  1. GLUCOTROL (GLIPIZIDE) [Suspect]
     Indication: TYPE 2 DIABETES MELLITUS

REACTIONS (8)
  - Anxiety [None]
  - Polyuria [None]
  - Flushing [None]
  - Nausea [None]
  - Vomiting [None]
  - Tremor [None]
  - Malaise [None]
  - Fear [None]
